FAERS Safety Report 25778216 (Version 1)
Quarter: 2025Q3

REPORT INFORMATION
  Report Type: Spontaneous
  Country: EU (occurrence: EU)
  Receive Date: 20250909
  Receipt Date: 20250909
  Transmission Date: 20251020
  Serious: Yes (Other)
  Sender: DR REDDYS
  Company Number: None

PATIENT
  Age: 60 Year
  Sex: Male

DRUGS (26)
  1. PREGABALIN [Suspect]
     Active Substance: PREGABALIN
     Indication: Bipolar disorder
     Dosage: 150 MILLIGRAM, QH (150 MILLIGRAM/24HOUR)
  2. VENLAFAXINE [Suspect]
     Active Substance: VENLAFAXINE HYDROCHLORIDE
     Indication: Bipolar disorder
     Dosage: 75 MILLIGRAM, QD (75-150MG/24 HOUR)
  3. VENLAFAXINE [Suspect]
     Active Substance: VENLAFAXINE HYDROCHLORIDE
     Dosage: 300 MILLIGRAM, QD (300 MILLIGRAM/24 HOUR)
  4. VENLAFAXINE [Suspect]
     Active Substance: VENLAFAXINE HYDROCHLORIDE
     Dosage: 150 MILLIGRAM, QD (75-150MG/24 HOUR)
  5. PAROXETINE [Suspect]
     Active Substance: PAROXETINE
     Indication: Anxiety
  6. PAROXETINE [Suspect]
     Active Substance: PAROXETINE
     Indication: Bipolar disorder
     Dosage: 40 MILLIGRAM, QD
  7. PAROXETINE [Suspect]
     Active Substance: PAROXETINE
     Indication: Depression
  8. HYDROXYZINE [Suspect]
     Active Substance: HYDROXYZINE HYDROCHLORIDE
     Indication: Bipolar disorder
     Dosage: 125 MILLIGRAM, QH
  9. HYDROXYZINE [Suspect]
     Active Substance: HYDROXYZINE HYDROCHLORIDE
     Indication: Anxiety
     Dosage: 100 MILLIGRAM, QH
  10. LORAZEPAM [Suspect]
     Active Substance: LORAZEPAM
     Indication: Bipolar disorder
  11. LORAZEPAM [Suspect]
     Active Substance: LORAZEPAM
     Dosage: 2.5 MILLIGRAM, QD 2.5 MG/24H
  12. LORAZEPAM [Suspect]
     Active Substance: LORAZEPAM
     Dosage: DOSES INCREASING TO 8 MG/24 H
  13. QUETIAPINE [Suspect]
     Active Substance: QUETIAPINE
     Indication: Anxiety
     Dosage: 300 MILLIGRAM, QD (DOSES INCREASING TO 300 MG/24 H)
  14. QUETIAPINE [Suspect]
     Active Substance: QUETIAPINE
     Indication: Bipolar disorder
  15. PROMETHAZINE [Suspect]
     Active Substance: PROMETHAZINE HYDROCHLORIDE
     Indication: Anxiety
     Dosage: 100 MILLIGRAM/QH (100 MILLIGRAM PER 24 HOUR)
  16. PROMETHAZINE [Suspect]
     Active Substance: PROMETHAZINE HYDROCHLORIDE
     Indication: Bipolar disorder
  17. LAMOTRIGINE [Suspect]
     Active Substance: LAMOTRIGINE
     Indication: Bipolar disorder
     Dosage: UP TO 150 MG/24 H
  18. MIANSERIN [Suspect]
     Active Substance: MIANSERIN
     Indication: Sleep disorder
     Dosage: 30 MILLIGRAM, QD (BEFORE NIGHT)
  19. REBOXETINE [Suspect]
     Active Substance: REBOXETINE
     Indication: Bipolar disorder
     Dosage: 4 MILLIGRAM, QD (4 MG/24HR)
  20. REBOXETINE [Suspect]
     Active Substance: REBOXETINE
     Dosage: 8 MILLIGRAM, QD (8 MG/24HR)
  21. REBOXETINE [Suspect]
     Active Substance: REBOXETINE
     Dosage: 8 MILLIGRAM, QH
  22. REBOXETINE [Suspect]
     Active Substance: REBOXETINE
     Dosage: 4 MILLIGRAM, QH
  23. SODIUM SELENITE [Suspect]
     Active Substance: SODIUM SELENITE
     Indication: Bipolar disorder
  24. ZOLPIDEM [Suspect]
     Active Substance: ZOLPIDEM TARTRATE
     Indication: Bipolar disorder
     Dosage: 10 MILLIGRAM, QD (10 MG AT NIGHT )
  25. LITHIUM CARBONATE [Concomitant]
     Active Substance: LITHIUM CARBONATE
     Indication: Bipolar disorder
     Dosage: 1500 MILLIGRAM, QD
  26. LITHIUM CARBONATE [Concomitant]
     Active Substance: LITHIUM CARBONATE
     Dosage: 1250 MILLIGRAM, QD

REACTIONS (9)
  - Therapeutic product effect incomplete [Unknown]
  - Drug dependence [Recovered/Resolved]
  - Hepatic enzyme increased [Unknown]
  - Fear [Recovering/Resolving]
  - Depressed mood [Recovering/Resolving]
  - Therapeutic response decreased [Unknown]
  - Anxiety [Recovering/Resolving]
  - Sleep disorder [Recovering/Resolving]
  - Withdrawal syndrome [Recovered/Resolved]
